FAERS Safety Report 6700662-X (Version None)
Quarter: 2010Q2

REPORT INFORMATION
  Report Type: 
  Country: None (occurrence: None)
  Receive Date: 20100428
  Receipt Date: 20100416
  Transmission Date: 20101027
  Serious: Yes (Other)
  Sender: FDA-Public Use
  Company Number: PHHY2010US24482

PATIENT
  Sex: Female

DRUGS (2)
  1. GLEEVEC [Suspect]
     Indication: CHRONIC MYELOID LEUKAEMIA
     Dosage: 400 MG
  2. GLIMEPIRIDE [Concomitant]
     Dosage: 2MG BID

REACTIONS (4)
  - ABDOMINAL PAIN UPPER [None]
  - HOT FLUSH [None]
  - HYSTERECTOMY [None]
  - NIGHT SWEATS [None]
